FAERS Safety Report 8593221-8 (Version None)
Quarter: 2012Q3

REPORT INFORMATION
  Report Type: 
  Country: None (occurrence: None)
  Receive Date: 20120814
  Receipt Date: 20120806
  Transmission Date: 20120928
  Serious: Yes (Other)
  Sender: FDA-Public Use
  Company Number: US-BAYER-2012-066477

PATIENT
  Age: 26 Year
  Sex: Female

DRUGS (2)
  1. MULTI-VITAMINS [Concomitant]
     Indication: VITAMIN SUPPLEMENTATION
     Dosage: 1 UNK, QD
     Route: 048
  2. MIRENA [Suspect]
     Indication: CONTRACEPTION
     Dosage: 20 MCG/24HR, CONT
     Route: 015
     Dates: start: 20101123, end: 20111206

REACTIONS (4)
  - DEVICE DISLOCATION [None]
  - VAGINAL HAEMORRHAGE [None]
  - PELVIC PAIN [None]
  - MENORRHAGIA [None]
